FAERS Safety Report 20988738 (Version 3)
Quarter: 2022Q3

REPORT INFORMATION
  Report Type: Spontaneous
  Country: US (occurrence: US)
  Receive Date: 20220621
  Receipt Date: 20220831
  Transmission Date: 20221027
  Serious: Yes (Death, Life-Threatening, Hospitalization)
  Sender: FDA-Public Use
  Company Number: US-PFIZER INC-202200777439

PATIENT
  Sex: Male
  Weight: 77.11 kg

DRUGS (1)
  1. VYNDAMAX [Suspect]
     Active Substance: TAFAMIDIS
     Indication: Cardiac disorder
     Dosage: 61 MG, 1X/DAY

REACTIONS (6)
  - Cardiac failure chronic [Fatal]
  - Staphylococcal infection [Fatal]
  - Cardiac arrest [Unknown]
  - Cardiac pacemaker insertion [Unknown]
  - Pericardial effusion [Unknown]
  - Off label use [Unknown]
